FAERS Safety Report 8523359-2 (Version None)
Quarter: 2012Q3

REPORT INFORMATION
  Report Type: 
  Country: None (occurrence: None)
  Receive Date: 20120713
  Receipt Date: 20120713
  Transmission Date: 20120928
  Serious: Yes (Hospitalization)
  Sender: FDA-Public Use
  Company Number: None

PATIENT
  Age: 74 Year
  Sex: Male
  Weight: 92.7 kg

DRUGS (1)
  1. ENOXAPARIN [Suspect]
     Dosage: 80 MG EVERY DAY SQ
     Route: 058
     Dates: start: 20111011, end: 20111102

REACTIONS (1)
  - HAEMOPTYSIS [None]
